FAERS Safety Report 14243945 (Version 2)
Quarter: 2017Q4

REPORT INFORMATION
  Report Type: Spontaneous
  Country: DE (occurrence: DE)
  Receive Date: 20171201
  Receipt Date: 20171227
  Transmission Date: 20180321
  Serious: Yes (Death, Other)
  Sender: FDA-Public Use
  Company Number: DE-PFIZER INC-2017511719

PATIENT
  Age: 60 Year
  Sex: Female

DRUGS (4)
  1. IBRANCE [Suspect]
     Active Substance: PALBOCICLIB
     Dosage: 125 MG, CYCLIC (1.CYCLE)
  2. EXEMESTANE. [Suspect]
     Active Substance: EXEMESTANE
     Dosage: UNK
  3. IBRANCE [Suspect]
     Active Substance: PALBOCICLIB
     Dosage: 100 MG, CYCLIC (2.CYCLE)
  4. IBRANCE [Suspect]
     Active Substance: PALBOCICLIB
     Dosage: UNK, CYCLIC (3.CYCLE)

REACTIONS (2)
  - Neutropenia [Unknown]
  - Neoplasm progression [Fatal]
